FAERS Safety Report 18257871 (Version 1)
Quarter: 2020Q3

REPORT INFORMATION
  Report Type: Report from Study
  Country: GB (occurrence: GB)
  Receive Date: 20200911
  Receipt Date: 20200911
  Transmission Date: 20201103
  Serious: Yes (Other)
  Sender: FDA-Public Use
  Company Number: GB-UCBSA-2020031621

PATIENT
  Sex: Male

DRUGS (2)
  1. CERTOLIZUMAB PEGOL JIA AUTOCLICKS [Suspect]
     Active Substance: CERTOLIZUMAB PEGOL
     Dosage: 200 MILLIGRAM, EV 2 WEEKS(QOW)
     Route: 058
  2. CERTOLIZUMAB PEGOL JIA AUTOCLICKS [Suspect]
     Active Substance: CERTOLIZUMAB PEGOL
     Indication: PSORIATIC ARTHROPATHY
     Dosage: 200 MILLIGRAM, MONTHLY (QM)
     Route: 058

REACTIONS (3)
  - Kidney infection [Recovered/Resolved]
  - Intentional product misuse [Unknown]
  - Infection [Unknown]
